FAERS Safety Report 4911426-1 (Version None)
Quarter: 2006Q1

REPORT INFORMATION
  Report Type: 
  Country: None (occurrence: None)
  Receive Date: 20060213
  Receipt Date: 20060201
  Transmission Date: 20060701
  Serious: Yes (Hospitalization, Other)
  Sender: FDA-Public Use
  Company Number: 2006016652

PATIENT
  Sex: Female
  Weight: 107.9561 kg

DRUGS (3)
  1. PROCARDIA XL [Suspect]
     Indication: HYPERTENSION
     Dosage: 60 MG (60 MG, QD INTERVAL: EVERY DAY), ORAL
     Route: 048
     Dates: end: 20060118
  2. ZOLOFT [Concomitant]
  3. DYAZIDE [Concomitant]

REACTIONS (8)
  - ASTHMA [None]
  - BLOOD CHOLESTEROL INCREASED [None]
  - BLOOD PRESSURE INCREASED [None]
  - CHRONIC OBSTRUCTIVE PULMONARY DISEASE [None]
  - EMPHYSEMA [None]
  - HYPOXIA [None]
  - MEMORY IMPAIRMENT [None]
  - SINUS DISORDER [None]
